FAERS Safety Report 9387559 (Version 1)
Quarter: 2013Q3

REPORT INFORMATION
  Report Type: Spontaneous
  Country: US (occurrence: None)
  Receive Date: 20130702
  Receipt Date: 20130702
  Transmission Date: 20140515
  Serious: Yes (Death)
  Sender: FDA-Public Use
  Company Number: UTC-034486

PATIENT
  Age: 81 Year
  Sex: Male
  Weight: 85.9 kg

DRUGS (2)
  1. TYVASO (6 MICROGRAM, AEROSOL FOR INHALATION) (TREPROSTINIL SODIUM) [Suspect]
     Indication: PULMONARY ARTERIAL HYPERTENSION
     Dosage: 18 TO 72 MICROGRAMS (4 IN 1 D),INHALATION
     Route: 055
     Dates: start: 20130319
  2. SILDENAFIL CITRATE (UNKNOWN) [Concomitant]

REACTIONS (1)
  - Death [None]
